FAERS Safety Report 15465030 (Version 1)
Quarter: 2018Q4

REPORT INFORMATION
  Report Type: Spontaneous
  Country: JP (occurrence: JP)
  Receive Date: 20181004
  Receipt Date: 20181004
  Transmission Date: 20190204
  Serious: Yes (Other)
  Sender: FDA-Public Use
  Company Number: JP-TEVA-2018-JP-002154J

PATIENT
  Age: 65 Year
  Sex: Female

DRUGS (1)
  1. ALPROSTADIL INJECTION 10 MICROG TAKEDA TEVA [Suspect]
     Active Substance: ALPROSTADIL
     Indication: PRODUCT USED FOR UNKNOWN INDICATION
     Dosage: 70 ML DAILY;
     Route: 041
     Dates: start: 20180419

REACTIONS (2)
  - Injection site extravasation [Unknown]
  - Vasculitis [Recovering/Resolving]
